FAERS Safety Report 5518325-5 (Version None)
Quarter: 2007Q4

REPORT INFORMATION
  Report Type: 
  Country: None (occurrence: None)
  Receive Date: 20071115
  Receipt Date: 20071108
  Transmission Date: 20080405
  Serious: Yes (Other)
  Sender: FDA-Public Use
  Company Number: CA-ASTRAZENECA-2007UW26044

PATIENT
  Age: 76 Year
  Sex: Male

DRUGS (15)
  1. XYLOCAINE [Suspect]
     Dosage: 2%
     Route: 047
  2. CYCLOPENTOLATE HYDROCHLORIDE [Suspect]
     Route: 047
  3. ALPHAGAN [Suspect]
     Route: 047
  4. DORC VISION BLUE [Suspect]
     Route: 047
  5. KETOROLAC [Suspect]
     Route: 047
  6. MIOCHOL [Suspect]
     Route: 047
  7. NEOSPORIN [Suspect]
     Route: 047
  8. PHENYLEPHRINE HYDROCHLORIDE [Suspect]
     Dosage: 2.5%
     Route: 047
  9. PREVIODINE [Suspect]
     Route: 047
  10. TROPICAMIDE [Suspect]
     Route: 047
  11. ZYMAR [Suspect]
     Route: 047
  12. ALTACE [Concomitant]
     Route: 048
  13. DOXEPIN HYDROCHLORIDE [Concomitant]
     Route: 048
  14. LORAZEPAM [Concomitant]
     Route: 048
  15. LOSEC [Concomitant]
     Route: 048

REACTIONS (2)
  - EYE DISORDER [None]
  - INFLAMMATION [None]
